FAERS Safety Report 8826475 (Version 1)
Quarter: 2012Q4

REPORT INFORMATION
  Report Type: 
  Country: JP (occurrence: JP)
  Receive Date: 20121008
  Receipt Date: 20121008
  Transmission Date: 20130627
  Serious: Yes (Other)
  Sender: FDA-Public Use
  Company Number: PHHY2012JP086941

PATIENT
  Sex: Female

DRUGS (2)
  1. EXELON PATCH [Suspect]
     Dosage: UNK
     Route: 062
     Dates: start: 201203
  2. REMINYL [Concomitant]

REACTIONS (1)
  - Suicide attempt [Unknown]
